FAERS Safety Report 20428011 (Version 4)
Quarter: 2024Q1

REPORT INFORMATION
  Report Type: Other
  Country: PT (occurrence: None)
  Receive Date: 20220204
  Receipt Date: 20240318
  Transmission Date: 20240409
  Serious: Yes (Death, Hospitalization)
  Sender: FDA-Public Use
  Company Number: PT-ROCHE-3015086

PATIENT
  Age: 60 Year
  Sex: Female
  Weight: 63 kg

DRUGS (31)
  1. TAXOL [Suspect]
     Active Substance: PACLITAXEL
     Indication: HER2 positive breast cancer
     Route: 065
     Dates: start: 20190724, end: 20200207
  2. PERJETA [Suspect]
     Active Substance: PERTUZUMAB
     Indication: HER2 positive breast cancer
     Dosage: MOST RECENT DOSE PRIOR TO THE EVENT: 14/MAY/2021
     Route: 042
     Dates: start: 20190724, end: 20191129
  3. HERCEPTIN [Suspect]
     Active Substance: TRASTUZUMAB
     Indication: HER2 positive breast cancer
     Dosage: MOST RECENT DOSE PRIOR TO THE EVENT: 14/MAY/2021
     Route: 065
     Dates: start: 20190724, end: 20191129
  4. FEMARA [Suspect]
     Active Substance: LETROZOLE
     Indication: HER2 positive breast cancer
     Route: 048
     Dates: start: 20200207, end: 20211107
  5. METAMIZOL [Concomitant]
     Active Substance: METAMIZOLE SODIUM
     Dosage: ONGOING = NOT CHECKED
     Dates: end: 20211107
  6. POLYETHYLENE GLYCOLS [Concomitant]
     Active Substance: POLYETHYLENE GLYCOLS
     Dosage: ONGOING = NOT CHECKED
     Dates: start: 20200124, end: 20211107
  7. TAZOBACTAM [Concomitant]
     Active Substance: TAZOBACTAM
     Indication: Acute kidney injury
     Dosage: ONGOING = NOT CHECKED
     Dates: start: 20211030, end: 20211106
  8. BISOPROLOL [Concomitant]
     Active Substance: BISOPROLOL\BISOPROLOL FUMARATE
     Indication: Cerebrovascular accident
     Dosage: ONGOING = NOT CHECKED
     Dates: start: 20211012, end: 20211022
  9. BISOPROLOL [Concomitant]
     Active Substance: BISOPROLOL\BISOPROLOL FUMARATE
     Dosage: ONGOING = NOT CHECKED
     Dates: end: 20211107
  10. CALCIUM\VITAMIN D [Concomitant]
     Active Substance: CALCIUM\VITAMIN D
     Dosage: ONGOING = NOT CHECKED
     Dates: end: 20211107
  11. DEXAMETHASONE [Concomitant]
     Active Substance: DEXAMETHASONE
     Dosage: ONGOING = NOT CHECKED
     Dates: end: 20211107
  12. LACTULOSE [Concomitant]
     Active Substance: LACTULOSE
     Dosage: ONGOING = NOT CHECKED
     Dates: end: 20211107
  13. LOPERAMIDE [Concomitant]
     Active Substance: LOPERAMIDE
     Dosage: ONGOING = NOT CHECKED
     Dates: end: 20211107
  14. METAMIZOL [Concomitant]
     Active Substance: METAMIZOLE SODIUM
     Dosage: ONGOING = NOT CHECKED
     Dates: end: 20211107
  15. METOCLOPRAMIDE [Concomitant]
     Active Substance: METOCLOPRAMIDE
     Dosage: ONGOING = NOT CHECKED
     Dates: end: 20211107
  16. PANTOPRAZOLE SODIUM [Concomitant]
     Active Substance: PANTOPRAZOLE SODIUM
     Dosage: ONGOING = NOT CHECKED
     Dates: end: 20211107
  17. ACETAMINOPHEN [Concomitant]
     Active Substance: ACETAMINOPHEN
     Dosage: ONGOING = NOT CHECKED
     Dates: end: 20211107
  18. PREGABALIN [Concomitant]
     Active Substance: PREGABALIN
     Dosage: ONGOING = NOT CHECKED
     Dates: end: 20211107
  19. TRAMADOL [Concomitant]
     Active Substance: TRAMADOL\TRAMADOL HYDROCHLORIDE
     Dosage: ONGOING = NOT CHECKED
     Dates: end: 20211107
  20. TRAMADOL [Concomitant]
     Active Substance: TRAMADOL\TRAMADOL HYDROCHLORIDE
     Dosage: ONGOING = NOT CHECKED
     Dates: end: 20211107
  21. ZOLPIDEM [Concomitant]
     Active Substance: ZOLPIDEM TARTRATE
     Dosage: ONGOING = NOT CHECKED
     Dates: end: 20211107
  22. ZOLEDRONIC ACID [Concomitant]
     Active Substance: ZOLEDRONIC ACID
     Dosage: ONGOING = NOT CHECKED
     Dates: start: 20190723, end: 20211107
  23. PERINDOPRIL [Concomitant]
     Active Substance: PERINDOPRIL
     Indication: Cerebrovascular accident
     Dosage: ONGOING = NOT CHECKED
     Dates: start: 20191129, end: 20211107
  24. PERINDOPRIL [Concomitant]
     Active Substance: PERINDOPRIL
     Dosage: ONGOING = NOT CHECKED
     Dates: start: 20211012, end: 20211022
  25. DULOXETINE [Concomitant]
     Active Substance: DULOXETINE
     Dosage: ONGOING = NOT CHECKED
     Dates: start: 20200522, end: 20211107
  26. AMLODIPINE [Concomitant]
     Active Substance: AMLODIPINE BESYLATE
     Indication: Cerebrovascular accident
     Dosage: ONGOING = NOT CHECKED
     Dates: start: 20211011, end: 20211013
  27. ENOXAPARIN [Concomitant]
     Active Substance: ENOXAPARIN
     Indication: Cerebrovascular accident
     Dosage: ONGOING = NOT CHECKED
     Dates: start: 20211011, end: 20211018
  28. ASPIRIN [Concomitant]
     Active Substance: ASPIRIN
     Indication: Cerebrovascular accident
     Dosage: ONGOING = NOT CHECKED
     Dates: start: 20211012, end: 20211022
  29. FUROSEMIDE [Concomitant]
     Active Substance: FUROSEMIDE
     Indication: Cerebrovascular accident
     Dosage: ONGOING = NOT CHECKED
     Dates: start: 20211012, end: 20211022
  30. PANTOPRAZOLE [Concomitant]
     Active Substance: PANTOPRAZOLE
     Indication: Cerebrovascular accident
     Dosage: ONGOING = NOT CHECKED
     Dates: start: 20211012, end: 20211022
  31. ROSUVASTATIN [Concomitant]
     Active Substance: ROSUVASTATIN
     Indication: Cerebrovascular accident
     Dosage: ONGOING = NOT CHECKED
     Dates: start: 20211013, end: 20211021

REACTIONS (1)
  - Acute kidney injury [Fatal]

NARRATIVE: CASE EVENT DATE: 20211029
